FAERS Safety Report 11715162 (Version 1)
Quarter: 2015Q4

REPORT INFORMATION
  Report Type: Spontaneous
  Country: CH (occurrence: CH)
  Receive Date: 20151109
  Receipt Date: 20151109
  Transmission Date: 20160304
  Serious: Yes (Hospitalization, Other)
  Sender: FDA-Public Use
  Company Number: CH-TEVA-605472ISR

PATIENT
  Age: 7 Year
  Sex: Male

DRUGS (9)
  1. DEPAKINE [Suspect]
     Active Substance: VALPROATE SODIUM
     Dosage: 4 ML DAILY;
     Route: 065
  2. SALBUTAMOL [Concomitant]
     Active Substance: ALBUTEROL
     Dosage: CONTINUING
     Route: 065
  3. ENALAPRIL [Concomitant]
     Active Substance: ENALAPRIL
     Indication: HYPERTENSION
     Dosage: 1.25 MILLIGRAM DAILY;
     Route: 048
  4. NOPIL [Suspect]
     Active Substance: SULFAMETHOXAZOLE\TRIMETHOPRIM
     Dosage: 14 ML DAILY;
     Route: 048
     Dates: start: 20150710, end: 20150717
  5. ATROVENT [Concomitant]
     Active Substance: IPRATROPIUM BROMIDE
     Route: 065
  6. ESIDREX [Suspect]
     Active Substance: HYDROCHLOROTHIAZIDE
     Indication: HYPERTENSION
     Dosage: 6 MILLIGRAM DAILY; LONG TERM (ONGOING FOR MONTHS OR YEARS)
     Route: 048
  7. CIPROXIN [Suspect]
     Active Substance: CIPROFLOXACIN
     Dosage: 9 ML DAILY;
     Route: 048
     Dates: start: 20150710, end: 20150717
  8. CARNITENE SIGMA-TAU [Concomitant]
     Dosage: STRENGTH 1 G
     Route: 048
  9. SOLMUCOL [Concomitant]
     Route: 048

REACTIONS (7)
  - Blood electrolytes decreased [Recovered/Resolved]
  - Blood sodium decreased [Recovered/Resolved]
  - Blood chloride decreased [Recovered/Resolved]
  - Blood potassium decreased [Recovered/Resolved]
  - Eye movement disorder [Recovered/Resolved]
  - Blood calcium decreased [Recovered/Resolved]
  - Loss of consciousness [Recovered/Resolved]

NARRATIVE: CASE EVENT DATE: 20150716
